FAERS Safety Report 15324852 (Version 1)
Quarter: 2018Q3

REPORT INFORMATION
  Report Type: Spontaneous
  Country: US (occurrence: US)
  Receive Date: 20180822
  Receipt Date: 20180822
  Transmission Date: 20181010
  Serious: No
  Sender: FDA-Public Use
  Company Number: None

PATIENT
  Age: 56 Year
  Sex: Female

DRUGS (10)
  1. SYNTHROID [Concomitant]
     Active Substance: LEVOTHYROXINE SODIUM
  2. PREVACID [Concomitant]
     Active Substance: LANSOPRAZOLE
  3. ATIVAN [Concomitant]
     Active Substance: LORAZEPAM
  4. CELEXA [Concomitant]
     Active Substance: CITALOPRAM HYDROBROMIDE
  5. NEURONTIN [Concomitant]
     Active Substance: GABAPENTIN
  6. ESTRADIOL. [Concomitant]
     Active Substance: ESTRADIOL
  7. BACLOFEN. [Concomitant]
     Active Substance: BACLOFEN
  8. URSODIOL. [Concomitant]
     Active Substance: URSODIOL
  9. OXYCODONE AND ACETAMINOPHEN [Concomitant]
     Active Substance: ACETAMINOPHEN\OXYCODONE HYDROCHLORIDE
  10. OCALIVA [Suspect]
     Active Substance: OBETICHOLIC ACID
     Indication: PRIMARY BILIARY CHOLANGITIS
     Route: 048
     Dates: start: 20161105

REACTIONS (1)
  - Nasopharyngitis [None]

NARRATIVE: CASE EVENT DATE: 20180811
